FAERS Safety Report 4412592-7 (Version None)
Quarter: 2004Q2

REPORT INFORMATION
  Report Type: 
  Country: None (occurrence: None)
  Receive Date: 20040630
  Receipt Date: 20040409
  Transmission Date: 20050107
  Serious: No
  Sender: FDA-Public Use
  Company Number: 04P-163-0257274-00

PATIENT
  Age: 62 Year
  Sex: Female
  Weight: 86.1834 kg

DRUGS (8)
  1. HUMIRA [Suspect]
     Indication: RHEUMATOID ARTHRITIS
     Dosage: 40 MG, 1 IN 2 WK, INJECTION
     Dates: start: 20031213
  2. VALSARTAN [Concomitant]
  3. METHOTREXATE [Concomitant]
  4. FOLIC ACID [Concomitant]
  5. GLUCOSAMINE [Concomitant]
  6. MULTI-VITAMINS [Concomitant]
  7. CALCIUM [Concomitant]
  8. ASCORBIC ACID [Concomitant]

REACTIONS (1)
  - INJECTION SITE BURNING [None]
